FAERS Safety Report 20570945 (Version 1)
Quarter: 2022Q1

REPORT INFORMATION
  Report Type: Spontaneous
  Country: FR (occurrence: FR)
  Receive Date: 20220309
  Receipt Date: 20220309
  Transmission Date: 20220423
  Serious: Yes (Hospitalization, Other)
  Sender: FDA-Public Use
  Company Number: FR-AFSSAPS-TO20221291

PATIENT
  Age: 42 Year
  Sex: Male
  Weight: 85 kg

DRUGS (3)
  1. FLUCONAZOLE [Suspect]
     Active Substance: FLUCONAZOLE
     Indication: Bacterial infection
     Dosage: 400 MILLIGRAM, ONCE A DAY
     Route: 048
     Dates: start: 20211112, end: 20211115
  2. FLUCYTOSINE [Suspect]
     Active Substance: FLUCYTOSINE
     Indication: Bacterial infection
     Dosage: UNK (4 TABLETS, 4X/D)
     Route: 048
     Dates: start: 20211116, end: 20211118
  3. AMBISOME [Suspect]
     Active Substance: AMPHOTERICIN B
     Indication: Bacterial infection
     Dosage: 250 MILLIGRAM, ONCE A DAY
     Route: 042
     Dates: start: 20211115, end: 20211119

REACTIONS (2)
  - Toxic skin eruption [Recovered/Resolved]
  - Pruritus [Recovered/Resolved]

NARRATIVE: CASE EVENT DATE: 20211118
